FAERS Safety Report 8914689 (Version 2)
Quarter: 2012Q4

REPORT INFORMATION
  Report Type: 
  Country: US (occurrence: US)
  Receive Date: 20121116
  Receipt Date: 20121221
  Transmission Date: 20130627
  Serious: No
  Sender: FDA-Public Use
  Company Number: US-B.I. PHARMACEUTICALS,INC./RIDGEFIELD-2012-BI-00365BP

PATIENT
  Sex: Female

DRUGS (2)
  1. MICARDIS [Suspect]
  2. COZAAR [Suspect]

REACTIONS (1)
  - Cough [Recovered/Resolved]
